FAERS Safety Report 7527725-3 (Version None)
Quarter: 2011Q2

REPORT INFORMATION
  Report Type: 
  Country: None (occurrence: None)
  Receive Date: 20110512
  Receipt Date: 20110406
  Transmission Date: 20111010
  Serious: No
  Sender: FDA-Public Use
  Company Number: 1000019915

PATIENT
  Age: 64 Year
  Sex: Female

DRUGS (14)
  1. HYDROCHLOROTHIAZIDE [Concomitant]
  2. NAPROXEN [Concomitant]
  3. FISH OIL (FISH OIL) (FISH OIL) [Concomitant]
  4. TRAZODONE (TRAZODONE) (TRAZODONE) [Concomitant]
  5. TYLENOL WITH CODEINE (PANADEINE CO) (PANADEINE CO) [Concomitant]
  6. ATENOLOL [Concomitant]
  7. DARVON (PROPOXYPHENE) (PROPOXYPHENE) [Concomitant]
  8. VITAMIN C (VITAMIN C) (VITAMIN C) [Concomitant]
  9. CNNAMON (CINNAMOMUM VERUM) (CINNAMOMUM VERUM) [Concomitant]
  10. ZONISAMIDE [Suspect]
     Indication: ARTHRALGIA
     Dosage: 100 MG (100 MG,1 IN 1 D),ORAL
     Route: 048
     Dates: start: 20100101
  11. TRAMADOL (TRAMADOL) (50 MILLIGRAM, TABLETS) (TRAMADOL) [Concomitant]
  12. SAVELLA [Suspect]
     Indication: ARTHRALGIA
     Dosage: 50 MG (25 MG,2 IN 1 D),ORAL
     Route: 048
     Dates: start: 20110406, end: 20110406
  13. SAVELLA [Suspect]
     Indication: ARTHRALGIA
     Dosage: 12.5 MG (12.5 MG,1 IN 1 D),ORAL ; 25 (12.5 MG,2 IN 1 D),ORAL
     Route: 048
     Dates: start: 20110403, end: 20110403
  14. SAVELLA [Suspect]
     Indication: ARTHRALGIA
     Dosage: 12.5 MG (12.5 MG,1 IN 1 D),ORAL ; 25 (12.5 MG,2 IN 1 D),ORAL
     Route: 048
     Dates: start: 20110404, end: 20110405

REACTIONS (11)
  - PRURITUS [None]
  - BURNING SENSATION [None]
  - FEELING COLD [None]
  - OEDEMA PERIPHERAL [None]
  - RESTLESS LEGS SYNDROME [None]
  - FEELING HOT [None]
  - MUSCLE SPASMS [None]
  - INSOMNIA [None]
  - AGITATION [None]
  - PARAESTHESIA ORAL [None]
  - DRUG INTERACTION [None]
